FAERS Safety Report 13321486 (Version 2)
Quarter: 2017Q1

REPORT INFORMATION
  Report Type: Spontaneous
  Country: US (occurrence: US)
  Receive Date: 20170310
  Receipt Date: 20170323
  Transmission Date: 20170428
  Serious: Yes (Hospitalization)
  Sender: FDA-Public Use
  Company Number: US-009507513-1703USA001914

PATIENT
  Age: 51 Year
  Sex: Male
  Weight: 94.4 kg

DRUGS (5)
  1. LENVATINIB [Suspect]
     Active Substance: LENVATINIB
     Indication: ADENOID CYSTIC CARCINOMA OF SALIVARY GLAND
     Dosage: 24 MG DAILY IN 28 DAY CYCLES
     Route: 048
     Dates: start: 20161117, end: 20170214
  2. MIDAZOLAM [Concomitant]
     Active Substance: MIDAZOLAM HYDROCHLORIDE
     Indication: ADENOID CYSTIC CARCINOMA OF SALIVARY GLAND
     Dosage: 4 MG, CYCLICAL
     Route: 048
     Dates: start: 20161114, end: 20161130
  3. COMPAZINE (PROCHLORPERAZINE MALEATE) [Concomitant]
  4. PRINIVIL [Suspect]
     Active Substance: LISINOPRIL
     Indication: HYPERTENSION
     Dosage: 5 MG, QD
     Route: 048
     Dates: start: 20170112, end: 20170218
  5. LEVOTHYROXINE SODIUM. [Concomitant]
     Active Substance: LEVOTHYROXINE SODIUM

REACTIONS (3)
  - Drug hypersensitivity [Unknown]
  - Dysphagia [Unknown]
  - Face oedema [Recovered/Resolved]

NARRATIVE: CASE EVENT DATE: 20170218
